FAERS Safety Report 6977001-2 (Version None)
Quarter: 2010Q3

REPORT INFORMATION
  Report Type: 
  Country: None (occurrence: None)
  Receive Date: 20100910
  Receipt Date: 20100830
  Transmission Date: 20110219
  Serious: Yes (Other)
  Sender: FDA-Public Use
  Company Number: BR-JNJCH-2010019958

PATIENT
  Sex: Male

DRUGS (1)
  1. COOL MINT LISTERINE [Suspect]
     Indication: DENTAL DISORDER PROPHYLAXIS
     Dosage: TEXT:UNKNOWN
     Route: 048

REACTIONS (2)
  - LIP AND/OR ORAL CAVITY CANCER [None]
  - SURGERY [None]
